FAERS Safety Report 14046929 (Version 2)
Quarter: 2017Q4

REPORT INFORMATION
  Report Type: Spontaneous
  Country: US (occurrence: US)
  Receive Date: 20171005
  Receipt Date: 20171113
  Transmission Date: 20180321
  Serious: No
  Sender: FDA-Public Use
  Company Number: US-PFIZER INC-2017393541

PATIENT
  Age: 14 Year
  Sex: Male
  Weight: 39.32 kg

DRUGS (8)
  1. GENOTROPIN [Suspect]
     Active Substance: SOMATROPIN
     Indication: GROWTH HORMONE DEFICIENCY
     Dosage: 4 MG, DAILY
  2. GENOTROPIN [Suspect]
     Active Substance: SOMATROPIN
     Indication: HYPOPITUITARISM
     Dosage: 2.0 MG, DAILY
     Dates: start: 201709, end: 201709
  3. GENOTROPIN [Suspect]
     Active Substance: SOMATROPIN
     Dosage: 1.8 MG, DAILY
     Route: 058
  4. GENOTROPIN [Suspect]
     Active Substance: SOMATROPIN
     Indication: BODY HEIGHT BELOW NORMAL
     Dosage: 1.8 MG, DAILY
     Route: 058
     Dates: start: 20161107, end: 201709
  5. GENOTROPIN [Suspect]
     Active Substance: SOMATROPIN
     Dosage: 4.8 MG, DAILY
  6. GENOTROPIN [Suspect]
     Active Substance: SOMATROPIN
     Dosage: 1.6 MG, DAILY (1.6 MG DAILY OF GENOTROPIN (0.31 MG/KG/WEEK))
  7. GENOTROPIN [Suspect]
     Active Substance: SOMATROPIN
     Dosage: 13.8 MG, UNK
     Route: 058
     Dates: start: 20170728
  8. PREDNISONE. [Concomitant]
     Active Substance: PREDNISONE
     Dosage: UNK
     Dates: start: 20170421

REACTIONS (8)
  - Increased appetite [Unknown]
  - Drug dose omission [Unknown]
  - Intentional overdose [Unknown]
  - Drug dispensing error [Unknown]
  - Incorrect dose administered [Unknown]
  - Obsessive-compulsive disorder [Unknown]
  - Device issue [Unknown]
  - Drug ineffective [Unknown]

NARRATIVE: CASE EVENT DATE: 201709
